FAERS Safety Report 6137646-9 (Version None)
Quarter: 2009Q1

REPORT INFORMATION
  Report Type: 
  Country: None (occurrence: None)
  Receive Date: 20090331
  Receipt Date: 20090327
  Transmission Date: 20090719
  Serious: Yes (Life-Threatening, Hospitalization)
  Sender: FDA-Public Use
  Company Number: GB-WYE-G03411109

PATIENT

DRUGS (2)
  1. GEMTUZUMAB OZOGAMICIN [Suspect]
     Dosage: UNKNOWN
     Dates: start: 20090304, end: 20090304
  2. CYTARABINE [Suspect]
     Dosage: UNKNOWN
     Dates: start: 20090304, end: 20090304

REACTIONS (2)
  - DIZZINESS [None]
  - UNRESPONSIVE TO STIMULI [None]
